FAERS Safety Report 10668333 (Version 1)
Quarter: 2014Q4

REPORT INFORMATION
  Report Type: Spontaneous
  Country: US (occurrence: None)
  Receive Date: 20141217
  Receipt Date: 20141217
  Transmission Date: 20150529
  Serious: Yes (Hospitalization)
  Sender: FDA-Public Use
  Company Number: 2014CT000130

PATIENT
  Age: 84 Year
  Sex: Female
  Weight: 54.43 kg

DRUGS (10)
  1. KORLYM [Suspect]
     Active Substance: MIFEPRISTONE
     Indication: CUSHING^S SYNDROME
     Route: 048
     Dates: start: 20140723
  2. CITALOPRAM [Concomitant]
     Active Substance: CITALOPRAM HYDROBROMIDE
  3. BENAZEPRIL [Concomitant]
     Active Substance: BENAZEPRIL\BENAZEPRIL HYDROCHLORIDE
  4. LEVOTHYROXINE [Concomitant]
     Active Substance: LEVOTHYROXINE
  5. METFORMIN [Concomitant]
     Active Substance: METFORMIN HYDROCHLORIDE
  6. VITAMIN D [Concomitant]
     Active Substance: CHOLECALCIFEROL
  7. LOVASTATIN. [Concomitant]
     Active Substance: LOVASTATIN
  8. TEMAZEPAM. [Concomitant]
     Active Substance: TEMAZEPAM
  9. CALCIUM [Concomitant]
     Active Substance: CALCIUM
  10. MULTIVATIMIN [Concomitant]

REACTIONS (1)
  - Constipation [None]

NARRATIVE: CASE EVENT DATE: 2014
